FAERS Safety Report 21163365 (Version 1)
Quarter: 2022Q3

REPORT INFORMATION
  Report Type: Spontaneous
  Country: None (occurrence: US)
  Receive Date: 20220802
  Receipt Date: 20220802
  Transmission Date: 20221026
  Serious: Yes (Other)
  Sender: FDA-Public Use
  Company Number: US-GREER Laboratories, Inc.-2131458

PATIENT
  Age: 15 Year
  Sex: Male

DRUGS (7)
  1. EASTERN WHITE PINE POLLEN [Suspect]
     Active Substance: PINUS STROBUS POLLEN
     Indication: Allergy test
     Route: 023
     Dates: start: 20220620, end: 20220620
  2. DOG EPITHELIA [Suspect]
     Active Substance: CANIS LUPUS FAMILIARIS SKIN
     Route: 023
     Dates: start: 20220620, end: 20220620
  3. MOUSE EPITHELIA [Suspect]
     Active Substance: MUS MUSCULUS SKIN
     Route: 023
     Dates: start: 20220620, end: 20220620
  4. ANIMAL ALLERGENS, FEATHER MIX [Suspect]
     Active Substance: ANAS PLATYRHYNCHOS FEATHER\ANSER ANSER FEATHER\GALLUS GALLUS FEATHER
     Route: 023
     Dates: start: 20220620, end: 20220620
  5. FUSARIUM MIX [Suspect]
     Active Substance: GIBBERELLA FUJIKUROI\HAEMATONECTRIA HAEMATOCOCCA
     Route: 023
     Dates: start: 20220620, end: 20220620
  6. ALTERNARIA ALTERNATA [Suspect]
     Active Substance: ALTERNARIA ALTERNATA
     Route: 050
     Dates: start: 20220620, end: 20220620
  7. FUSARIUM MIX [Suspect]
     Active Substance: GIBBERELLA FUJIKUROI\HAEMATONECTRIA HAEMATOCOCCA
     Route: 050
     Dates: start: 20220620, end: 20220620

REACTIONS (1)
  - Anaphylactic reaction [Recovered/Resolved]

NARRATIVE: CASE EVENT DATE: 20220620
